FAERS Safety Report 17308973 (Version 1)
Quarter: 2020Q1

REPORT INFORMATION
  Report Type: Spontaneous
  Country: US (occurrence: US)
  Receive Date: 20200123
  Receipt Date: 20200123
  Transmission Date: 20200409
  Serious: No
  Sender: FDA-Public Use
  Company Number: US-LEO PHARMA-327502

PATIENT
  Sex: Female

DRUGS (2)
  1. SKINOREN GEL [Suspect]
     Active Substance: AZELAIC ACID
     Dosage: APPROXIMATELY 6 MONTHS PRIOR
  2. SKINOREN GEL [Suspect]
     Active Substance: AZELAIC ACID
     Indication: PRODUCT USED FOR UNKNOWN INDICATION
     Route: 061

REACTIONS (1)
  - Fungal infection [Recovering/Resolving]
